FAERS Safety Report 4515217-5 (Version None)
Quarter: 2004Q4

REPORT INFORMATION
  Report Type: 
  Country: None (occurrence: None)
  Receive Date: 20041201
  Receipt Date: 20041119
  Transmission Date: 20050328
  Serious: Yes (Hospitalization)
  Sender: FDA-Public Use
  Company Number: FR-GLAXOSMITHKLINE-B0357747A

PATIENT
  Age: 62 Year
  Sex: Female

DRUGS (3)
  1. LAMICTAL [Suspect]
     Indication: CONVULSION
     Route: 048
     Dates: start: 20040901, end: 20040927
  2. DEPAKENE [Concomitant]
     Indication: CONVULSION
     Route: 048
     Dates: start: 20040405, end: 20040901
  3. CLONAZEPAM [Concomitant]
     Route: 048
     Dates: start: 20040927, end: 20041007

REACTIONS (8)
  - CHOLESTASIS [None]
  - CYTOLYTIC HEPATITIS [None]
  - EOSINOPHILIA [None]
  - HYPERSENSITIVITY [None]
  - PYREXIA [None]
  - RASH [None]
  - UVEITIS [None]
  - VISUAL DISTURBANCE [None]
